FAERS Safety Report 5385826-2 (Version None)
Quarter: 2007Q3

REPORT INFORMATION
  Report Type: 
  Country: None (occurrence: None)
  Receive Date: 20070712
  Receipt Date: 20070702
  Transmission Date: 20080115
  Serious: Yes (Other)
  Sender: FDA-Public Use
  Company Number: US-ELI_LILLY_AND_COMPANY-US200706002684

PATIENT
  Age: 35 Year
  Sex: Female

DRUGS (1)
  1. HUMALOG [Suspect]
     Dosage: 1 U, UNK

REACTIONS (9)
  - BLOOD GLUCOSE INCREASED [None]
  - CONVULSION [None]
  - DYSPNOEA [None]
  - FEELING ABNORMAL [None]
  - HYPERSENSITIVITY [None]
  - MUSCULOSKELETAL STIFFNESS [None]
  - PANIC ATTACK [None]
  - PARALYSIS [None]
  - TREMOR [None]
